FAERS Safety Report 12431907 (Version 13)
Quarter: 2018Q1

REPORT INFORMATION
  Report Type: Report from Study
  Country: US (occurrence: US)
  Receive Date: 20160603
  Receipt Date: 20180321
  Transmission Date: 20180508
  Serious: Yes (Death, Hospitalization)
  Sender: FDA-Public Use
  Company Number: US-ROCHE-1690353

PATIENT
  Age: 73 Year
  Sex: Female
  Weight: 73.4 kg

DRUGS (24)
  1. ATEZOLIZUMAB. [Suspect]
     Active Substance: ATEZOLIZUMAB
     Indication: NON-SMALL CELL LUNG CANCER STAGE IV
     Dosage: MOST RECENT DOSE: 30/DEC/2015, AT 9:35?FORM AS PER STUDY PROTOCOL
     Route: 042
     Dates: start: 20151230
  2. NAB-PACLITAXEL [Suspect]
     Active Substance: PACLITAXEL
     Indication: NON-SMALL CELL LUNG CANCER STAGE IV
     Dosage: MOST RECENT DOSE: 30/DEC/2015, 180 MG AT 10:40?FORM AND DOSE AMOUNT AS PER STUDY PROTOCOL
     Route: 042
     Dates: start: 20151230
  3. LEVOTHYROXINE. [Concomitant]
     Active Substance: LEVOTHYROXINE
     Indication: HYPOTHYROIDISM
     Route: 048
     Dates: start: 20020416, end: 20160105
  4. TYLENOL [Concomitant]
     Active Substance: ACETAMINOPHEN
     Indication: PAIN
     Route: 065
     Dates: start: 20151101, end: 20160106
  5. MORPHINE [Concomitant]
     Active Substance: MORPHINE
     Indication: BREAKTHROUGH PAIN
     Route: 042
     Dates: start: 20160103, end: 20160103
  6. COMPAZINE [Concomitant]
     Active Substance: PROCHLORPERAZINE MALEATE
     Indication: NAUSEA
     Route: 048
     Dates: start: 20151230, end: 20160105
  7. ZOFRAN [Concomitant]
     Active Substance: ONDANSETRON HYDROCHLORIDE
     Indication: NAUSEA
     Route: 048
     Dates: start: 20151230, end: 20160104
  8. GLYCOLAX [Concomitant]
     Active Substance: POLYETHYLENE GLYCOL 3350
     Route: 048
     Dates: start: 20160106, end: 20160106
  9. PERIDEX (UNITED STATES) [Concomitant]
     Indication: PROPHYLAXIS
     Route: 048
     Dates: start: 20160103, end: 20160105
  10. MORPHINE [Concomitant]
     Active Substance: MORPHINE
     Route: 048
     Dates: start: 20160105, end: 20160105
  11. LEVONOX [Concomitant]
     Active Substance: ENOXAPARIN
     Indication: THROMBOSIS PROPHYLAXIS
     Dosage: SITE: ABDOMINAL TISSUE
     Route: 058
     Dates: start: 20160103, end: 20160105
  12. ZOFRAN [Concomitant]
     Active Substance: ONDANSETRON HYDROCHLORIDE
     Indication: VOMITING
     Dosage: IT PATIENT DOES NOT TOLERATE ORAL ONDANSETRON
     Route: 042
     Dates: start: 20160103, end: 20160104
  13. NORMAL SALINE [Concomitant]
     Active Substance: SODIUM CHLORIDE
     Route: 042
     Dates: start: 20151230, end: 20151230
  14. CARBOPLATIN. [Suspect]
     Active Substance: CARBOPLATIN
     Indication: NON-SMALL CELL LUNG CANCER STAGE IV
     Dosage: TARGET AUC = 6 MG/ML/MIN?MOST RECENT DOSE (570 MG): 30/DEC/2015, AT 11:35?FORM AND DOSE AMOUNT AS PE
     Route: 042
     Dates: start: 20151230
  15. TYLENOL [Concomitant]
     Active Substance: ACETAMINOPHEN
     Indication: PYREXIA
     Route: 048
     Dates: start: 20160103, end: 20160106
  16. SENOKOT [Concomitant]
     Active Substance: SENNOSIDES
     Indication: CONSTIPATION
     Route: 048
     Dates: start: 20160103, end: 20160105
  17. TESSALON [Concomitant]
     Active Substance: BENZONATATE
     Route: 048
     Dates: start: 20160103, end: 20160105
  18. SENOKOT [Concomitant]
     Active Substance: SENNOSIDES
     Route: 048
     Dates: start: 20160105, end: 20160105
  19. MORPHINE [Concomitant]
     Active Substance: MORPHINE
     Route: 048
     Dates: start: 20160103, end: 20160105
  20. COMPAZINE [Concomitant]
     Active Substance: PROCHLORPERAZINE MALEATE
     Indication: VOMITING
  21. TESSALON [Concomitant]
     Active Substance: BENZONATATE
     Indication: COUGH
     Route: 065
     Dates: start: 20151230, end: 20160105
  22. NORMAL SALINE [Concomitant]
     Active Substance: SODIUM CHLORIDE
     Route: 065
     Dates: start: 20151230, end: 20151230
  23. GUAIFENESIN/CODEINE [Concomitant]
     Active Substance: CODEINE PHOSPHATE\GUAIFENESIN
     Indication: COUGH
     Route: 048
     Dates: start: 20151112, end: 20160105
  24. MORPHINE [Concomitant]
     Active Substance: MORPHINE
     Indication: PAIN
     Route: 042
     Dates: start: 20160103, end: 20160105

REACTIONS (3)
  - Dizziness [Recovered/Resolved]
  - Sepsis [Recovered/Resolved]
  - Lung infection [Recovered/Resolved]

NARRATIVE: CASE EVENT DATE: 20160103
